FAERS Safety Report 5715357-9 (Version None)
Quarter: 2008Q2

REPORT INFORMATION
  Report Type: 
  Country: None (occurrence: None)
  Receive Date: 20080423
  Receipt Date: 20080415
  Transmission Date: 20081010
  Serious: Yes (Other)
  Sender: FDA-Public Use
  Company Number: US-PFIZER INC-2008033066

PATIENT
  Sex: Male
  Weight: 74.8 kg

DRUGS (2)
  1. LIPITOR [Suspect]
     Indication: HYPERTENSION
     Dosage: DAILY DOSE:30MG
     Dates: start: 20050101, end: 20070101
  2. DRUG, UNSPECIFIED [Concomitant]

REACTIONS (2)
  - HYPOAESTHESIA [None]
  - PARALYTIC DISABILITY [None]
